FAERS Safety Report 8606267-8 (Version None)
Quarter: 2012Q3

REPORT INFORMATION
  Report Type: 
  Country: None (occurrence: None)
  Receive Date: 20120820
  Receipt Date: 20120815
  Transmission Date: 20120928
  Serious: Yes (Hospitalization)
  Sender: FDA-Public Use
  Company Number: CA-ROCHE-1102591

PATIENT
  Age: 73 Year
  Sex: Male

DRUGS (10)
  1. XELODA [Suspect]
     Indication: PRODUCT USED FOR UNKNOWN INDICATION
     Route: 048
  2. INSULIN [Concomitant]
     Route: 065
  3. ATACAND [Concomitant]
     Route: 065
  4. NEXIUM [Concomitant]
     Route: 048
  5. CARVEDILOL [Concomitant]
     Route: 048
  6. FUROSEMIDE [Concomitant]
     Route: 048
  7. AMLODIPINE [Concomitant]
     Route: 048
  8. DIGOXIN [Concomitant]
     Route: 048
  9. ASPIRIN [Concomitant]
     Route: 048
  10. RISEDRONATE SODIUM [Concomitant]
     Route: 048

REACTIONS (7)
  - ANGIOEDEMA [None]
  - EOSINOPHIL COUNT ABNORMAL [None]
  - PRURITUS [None]
  - PYREXIA [None]
  - PALMAR-PLANTAR ERYTHRODYSAESTHESIA SYNDROME [None]
  - LIP SWELLING [None]
  - URTICARIA [None]
